FAERS Safety Report 9140062 (Version 1)
Quarter: 2013Q1

REPORT INFORMATION
  Report Type: Spontaneous
  Country: US (occurrence: US)
  Receive Date: 20130305
  Receipt Date: 20130305
  Transmission Date: 20140127
  Serious: Yes (Other)
  Sender: FDA-Public Use
  Company Number: US-SANOFI-AVENTIS-2013SA021216

PATIENT
  Age: 72 Year
  Sex: Female

DRUGS (5)
  1. ZOLPIDEM TARTRATE [Suspect]
     Indication: SLEEP DISORDER
     Dosage: PRODUCT TAKINF FOR A YEARS, FREQENCY IS Q NIGHT
     Route: 048
  2. ZOLPIDEM TARTRATE [Suspect]
     Indication: SLEEP DISORDER
     Route: 048
  3. CLONAZEPAM [Concomitant]
     Dosage: 2 X 1 MG CLONAZEPAM FOR A SLEEP
  4. BENADRYL /OLD FORM/ [Concomitant]
     Dosage: TWO  BENADRYL 25 MG.
  5. CARDIOVASCULAR SYSTEM DRUGS [Concomitant]

REACTIONS (7)
  - Myocardial infarction [Unknown]
  - Renal disorder [Unknown]
  - Migraine [Unknown]
  - Insomnia [Unknown]
  - Arthralgia [Unknown]
  - Depression [Unknown]
  - Therapeutic response decreased [Unknown]
